FAERS Safety Report 11736011 (Version 1)
Quarter: 2015Q4

REPORT INFORMATION
  Report Type: Spontaneous
  Country: US (occurrence: US)
  Receive Date: 20151110
  Receipt Date: 20151110
  Transmission Date: 20160304
  Serious: No
  Sender: FDA-Public Use
  Company Number: US-ELI_LILLY_AND_COMPANY-US201110005979

PATIENT
  Age: 62 Year
  Sex: Female

DRUGS (2)
  1. FORTEO [Suspect]
     Active Substance: TERIPARATIDE
     Indication: STRESS FRACTURE
     Dosage: 20 UG, QD
     Dates: start: 201108
  2. FORTEO [Suspect]
     Active Substance: TERIPARATIDE
     Dosage: 20 UG, UNK

REACTIONS (11)
  - Pain in extremity [Unknown]
  - Pain [Unknown]
  - Eyelid sensory disorder [Not Recovered/Not Resolved]
  - Limb discomfort [Unknown]
  - Fatigue [Unknown]
  - Blister [Not Recovered/Not Resolved]
  - Hypersomnia [Not Recovered/Not Resolved]
  - Muscle twitching [Not Recovered/Not Resolved]
  - Off label use [Recovered/Resolved]
  - Epicondylitis [Not Recovered/Not Resolved]
  - Arthralgia [Unknown]

NARRATIVE: CASE EVENT DATE: 201110
